FAERS Safety Report 20143016 (Version 2)
Quarter: 2022Q1

REPORT INFORMATION
  Report Type: Report from Study
  Country: US (occurrence: US)
  Receive Date: 20211202
  Receipt Date: 20220128
  Transmission Date: 20220423
  Serious: No
  Sender: FDA-Public Use
  Company Number: US-ACADIA PHARMACEUTICALS INC.-ACA-2021-PIM-003994

PATIENT
  Sex: Male

DRUGS (1)
  1. NUPLAZID [Suspect]
     Active Substance: PIMAVANSERIN TARTRATE
     Indication: Parkinson^s disease
     Dosage: 10 MILLIGRAM, QD, AT BEDTIME
     Route: 048

REACTIONS (5)
  - Urinary tract infection [Unknown]
  - Urinary tract infection [Unknown]
  - Underdose [Unknown]
  - Loss of personal independence in daily activities [Unknown]
  - Gait inability [Unknown]
